FAERS Safety Report 17795351 (Version 1)
Quarter: 2020Q2

REPORT INFORMATION
  Report Type: Spontaneous
  Country: US (occurrence: US)
  Receive Date: 20200515
  Receipt Date: 20200515
  Transmission Date: 20200714
  Serious: No
  Sender: FDA-Public Use
  Company Number: US-ASTRAZENECA-2020SE30031

PATIENT
  Sex: Female
  Weight: 7.3 kg

DRUGS (1)
  1. SYNAGIS [Suspect]
     Active Substance: PALIVIZUMAB
     Indication: PREMATURE BABY
     Dosage: 100MG/1ML VL LIQUID 15 MG/KG MONTHLY
     Route: 030
     Dates: start: 20191018

REACTIONS (1)
  - Respiratory syncytial virus infection [Recovered/Resolved]
